FAERS Safety Report 11363385 (Version 2)
Quarter: 2015Q3

REPORT INFORMATION
  Report Type: Spontaneous
  Country: IT (occurrence: IT)
  Receive Date: 20150811
  Receipt Date: 20150813
  Transmission Date: 20151125
  Serious: Yes (Hospitalization)
  Sender: FDA-Public Use
  Company Number: IT-AUROBINDO-AUR-APL-2015-06738

PATIENT
  Age: 65 Year
  Sex: Female

DRUGS (12)
  1. GABAPENTIN. [Concomitant]
     Active Substance: GABAPENTIN
     Indication: PRODUCT USED FOR UNKNOWN INDICATION
     Dosage: 1200 MG
     Route: 065
     Dates: start: 20110101, end: 20150625
  2. ANSIOLIN - ALMIRALL S.P.A. [Suspect]
     Active Substance: DIAZEPAM
     Indication: DEPRESSION
     Dosage: 2.5 MG DAILY
     Route: 048
     Dates: start: 20110101, end: 20150625
  3. SUMATRIPTAN. [Concomitant]
     Active Substance: SUMATRIPTAN
     Dosage: 25 MG
     Route: 048
  4. LIMBITRYL - 12.5 MG + 5 MG CAPSULE RIGIDE - MEDA PHARMA S.P.A. [Suspect]
     Active Substance: AMITRIPTYLINE HYDROCHLORIDE\CHLORDIAZEPOXIDE
     Indication: PRODUCT USED FOR UNKNOWN INDICATION
     Dosage: 1 DF DAILY
     Dates: start: 20110101, end: 20150625
  5. CITALOPRAM FILM-COATED TABLET [Suspect]
     Active Substance: CITALOPRAM HYDROBROMIDE
     Indication: DEPRESSION
     Dosage: 10 MG, DAILY
     Route: 048
     Dates: start: 20110101, end: 20150625
  6. OMEPRAZOLE. [Concomitant]
     Active Substance: OMEPRAZOLE
     Indication: PRODUCT USED FOR UNKNOWN INDICATION
     Route: 065
  7. ENTUMIN - LABORATOIRES JUVISE PHARMACEUTICALS [Suspect]
     Active Substance: CLOTHIAPINE
     Indication: DEPRESSION
     Dosage: 33 MG DAILY
     Route: 048
     Dates: start: 20110101, end: 20150625
  8. CITALOPRAM BROMOHYDRATE [Suspect]
     Active Substance: CITALOPRAM HYDROBROMIDE
     Indication: DEPRESSION
     Dosage: 10 MG DAILY
     Route: 048
     Dates: start: 20110101, end: 20150625
  9. ENTUMIN [Suspect]
     Active Substance: CLOTHIAPINE
     Indication: DEPRESSION
     Dosage: 33 MG, DAILY
     Route: 048
     Dates: start: 20110101, end: 20150625
  10. LIMBITRYL                          /00033501/ [Suspect]
     Active Substance: AMITRIPTYLINE HYDROCHLORIDE\CHLORDIAZEPOXIDE HYDROCHLORIDE
     Indication: PRODUCT USED FOR UNKNOWN INDICATION
     Dosage: 1 DF, DAILY
     Dates: start: 20110101, end: 20150625
  11. ANSIOLIN [Suspect]
     Active Substance: DIAZEPAM
     Indication: DEPRESSION
     Dosage: 2.5 MG, DAILY
     Dates: start: 20110101, end: 20150625
  12. SUMATRIPTAN. [Concomitant]
     Active Substance: SUMATRIPTAN
     Indication: PRODUCT USED FOR UNKNOWN INDICATION
     Dosage: 25 MG, UNK
     Route: 065

REACTIONS (2)
  - Coma [Recovered/Resolved]
  - Drug abuse [Unknown]

NARRATIVE: CASE EVENT DATE: 20150625
